FAERS Safety Report 8503882 (Version 2)
Quarter: 2013Q1

REPORT INFORMATION
  Report Type: Spontaneous
  Country: JP (occurrence: JP)
  Receive Date: 20120411
  Receipt Date: 20130118
  Transmission Date: 20140127
  Serious: Yes (Other)
  Sender: FDA-Public Use
  Company Number: JP-PFIZER INC-2012084625

PATIENT
  Age: 61 Year
  Sex: Female

DRUGS (2)
  1. VFEND [Suspect]
     Indication: SYSTEMIC MYCOSIS
     Dosage: UNK
     Route: 048
     Dates: start: 20111009, end: 20111019
  2. TACROLIMUS [Suspect]
     Dosage: 10 MG/DAY
     Dates: start: 20110902, end: 20111109

REACTIONS (3)
  - Hemianopia [Recovering/Resolving]
  - Vision blurred [Recovered/Resolved]
  - Photophobia [Recovered/Resolved]
